FAERS Safety Report 18895927 (Version 1)
Quarter: 2021Q1

REPORT INFORMATION
  Report Type: Spontaneous
  Country: CZ (occurrence: CZ)
  Receive Date: 20210216
  Receipt Date: 20210216
  Transmission Date: 20210420
  Serious: Yes (Life-Threatening, Hospitalization, Other)
  Sender: FDA-Public Use
  Company Number: CZ-CELLTRION INC.-2020CZ022910

PATIENT

DRUGS (30)
  1. RITUXIMAB (UNKNOWN) [Suspect]
     Active Substance: RITUXIMAB
     Indication: CHRONIC LYMPHOCYTIC LEUKAEMIA
     Dosage: 375 MG/M2
     Route: 065
  2. RITUXIMAB (UNKNOWN) [Suspect]
     Active Substance: RITUXIMAB
     Dosage: CONTINUED WITH A COMBINATION OF VENETOCLAX AND RITUXIMAB
     Route: 065
  3. VENETOCLAX. [Suspect]
     Active Substance: VENETOCLAX
     Indication: DISEASE PROGRESSION
     Dosage: 400 MILLIGRAM, QD
     Route: 065
  4. IDELALISIB [Concomitant]
     Active Substance: IDELALISIB
     Indication: CHRONIC LYMPHOCYTIC LEUKAEMIA
     Dosage: CHANGED TO IDELALISIB + RITUXIMAB
     Route: 065
  5. FLUDARABINE [Concomitant]
     Active Substance: FLUDARABINE PHOSPHATE
     Indication: CHRONIC LYMPHOCYTIC LEUKAEMIA
     Dosage: 6X FCR
     Route: 065
     Dates: start: 201010
  6. VENETOCLAX. [Suspect]
     Active Substance: VENETOCLAX
     Indication: CHRONIC LYMPHOCYTIC LEUKAEMIA
     Dosage: 300 MG, QD
     Route: 065
  7. VENETOCLAX. [Suspect]
     Active Substance: VENETOCLAX
     Dosage: 100 MG, QD
     Route: 065
  8. VENETOCLAX. [Suspect]
     Active Substance: VENETOCLAX
     Dosage: 100 MG, DAILY
     Route: 065
  9. CYCLOPHOSPHAMIDE. [Concomitant]
     Active Substance: CYCLOPHOSPHAMIDE
     Dosage: 6 X FCR
     Route: 065
     Dates: start: 201301
  10. FLUDARABINE [Concomitant]
     Active Substance: FLUDARABINE PHOSPHATE
     Dosage: 6X FCR
     Route: 065
     Dates: start: 201301
  11. VENETOCLAX. [Concomitant]
     Active Substance: VENETOCLAX
     Indication: CHRONIC LYMPHOCYTIC LEUKAEMIA
     Dosage: VENETOCLAX MONOTHERAPY INITIATION
     Route: 065
     Dates: start: 201606
  12. BENDAMUSTINE [Concomitant]
     Active Substance: BENDAMUSTINE
     Indication: CHRONIC LYMPHOCYTIC LEUKAEMIA
     Dosage: 5 X BR
     Route: 065
     Dates: start: 201504
  13. RITUXIMAB (UNKNOWN) [Suspect]
     Active Substance: RITUXIMAB
     Dosage: CHANGED TO IDELALISIB + RITUXIMAB
     Route: 065
  14. CYCLOPHOSPHAMIDE. [Concomitant]
     Active Substance: CYCLOPHOSPHAMIDE
     Indication: CHRONIC LYMPHOCYTIC LEUKAEMIA
     Dosage: 6 X FCR
     Route: 065
     Dates: start: 201010
  15. RITUXIMAB. [Concomitant]
     Active Substance: RITUXIMAB
     Dosage: 6 X FCR
     Route: 065
     Dates: start: 201301
  16. RITUXIMAB (UNKNOWN) [Suspect]
     Active Substance: RITUXIMAB
     Indication: DISEASE PROGRESSION
     Dosage: 375 MILLIGRAM/SQ. METER, MONTHLY
     Route: 065
  17. CYCLOPHOSPHAMIDE. [Suspect]
     Active Substance: CYCLOPHOSPHAMIDE
     Indication: CHRONIC LYMPHOCYTIC LEUKAEMIA
     Dosage: 50 MG, QD
     Route: 065
  18. VENETOCLAX. [Suspect]
     Active Substance: VENETOCLAX
     Dosage: CONTINUED WITH A COMBINATION OF VENETOCLAX AND RITUXIMAB
     Route: 065
  19. ENDOXAN [CYCLOPHOSPHAMIDE MONOHYDRATE] [Suspect]
     Active Substance: CYCLOPHOSPHAMIDE
     Indication: CHRONIC LYMPHOCYTIC LEUKAEMIA
     Dosage: 50 MG DAILY DOSE, ONE MONTH ADMINISTERED
     Route: 065
  20. RITUXIMAB. [Concomitant]
     Active Substance: RITUXIMAB
     Dosage: 5 X BR
     Route: 065
     Dates: start: 201504
  21. CYCLOPHOSPHAMIDE. [Suspect]
     Active Substance: CYCLOPHOSPHAMIDE
     Dosage: 700 MILLIGRAM/SQ. METER, MONTHLY
     Route: 065
  22. VENETOCLAX. [Suspect]
     Active Substance: VENETOCLAX
     Dosage: 400 MG DAILY DOSE, ONCE MONTHLY
     Route: 065
  23. ENDOXAN [CYCLOPHOSPHAMIDE MONOHYDRATE] [Suspect]
     Active Substance: CYCLOPHOSPHAMIDE
     Dosage: 700 MG/M2, ONCE MONTHLY
     Route: 065
  24. IBRUTINIB [Concomitant]
     Active Substance: IBRUTINIB
     Indication: CHRONIC LYMPHOCYTIC LEUKAEMIA
     Dosage: UNK
     Route: 065
     Dates: start: 201510
  25. PEGFILGRASTIM [Suspect]
     Active Substance: PEGFILGRASTIM
     Indication: PRODUCT USED FOR UNKNOWN INDICATION
     Dosage: UNK
     Route: 065
  26. PEGYLATED RECOMBINANT HUMAN GRANULOCYTE COLONY STIMULATING FACTOR [Concomitant]
     Indication: PRODUCT USED FOR UNKNOWN INDICATION
     Route: 065
  27. OFATUMUMAB [Concomitant]
     Active Substance: OFATUMUMAB
     Indication: CHRONIC LYMPHOCYTIC LEUKAEMIA
     Dosage: 7 X OFA
     Route: 065
     Dates: start: 201312
  28. VENETOCLAX. [Suspect]
     Active Substance: VENETOCLAX
     Dosage: UNK, MONTHLY
     Route: 065
  29. FLUDARABINE [Concomitant]
     Active Substance: FLUDARABINE PHOSPHATE
     Dosage: 6X FCR
     Route: 065
     Dates: start: 201310
  30. RITUXIMAB. [Concomitant]
     Active Substance: RITUXIMAB
     Indication: CHRONIC LYMPHOCYTIC LEUKAEMIA
     Dosage: 6 X FCR
     Route: 065
     Dates: start: 201010

REACTIONS (5)
  - Cellulitis [Unknown]
  - Disease progression [Recovered/Resolved]
  - Therapy partial responder [Unknown]
  - Neutropenia [Unknown]
  - Therapeutic response decreased [Unknown]
